FAERS Safety Report 6264271-1 (Version None)
Quarter: 2009Q3

REPORT INFORMATION
  Report Type: 
  Country: None (occurrence: None)
  Receive Date: 20090706
  Receipt Date: 20081201
  Transmission Date: 20100115
  Serious: Yes (Hospitalization)
  Sender: FDA-Public Use
  Company Number: 600089

PATIENT
  Age: 20 Year
  Sex: Male
  Weight: 66.5 kg

DRUGS (7)
  1. CELLCEPT [Suspect]
     Indication: NEPHROSCLEROSIS
     Dosage: 100 GM 1 PER DAY ORAL
     Route: 048
     Dates: start: 20081005, end: 20081029
  2. PROCRIT [Suspect]
     Indication: NEPHROGENIC ANAEMIA
     Dosage: 22000 IU 2 PER MONTH SUBCUTANEOUS
     Route: 058
     Dates: start: 20080104, end: 20081017
  3. COSAAR *(LOSARTAN POTASSIUM) [Concomitant]
  4. AMLODIPINE (AMLODIPINE BESYLATE) [Concomitant]
  5. ZETIA [Concomitant]
  6. FUROSEMIDE [Concomitant]
  7. LISINOPRIL [Concomitant]

REACTIONS (2)
  - ANAEMIA [None]
  - HYPERPARATHYROIDISM [None]
